FAERS Safety Report 4761526-4 (Version None)
Quarter: 2005Q3

REPORT INFORMATION
  Report Type: 
  Country: None (occurrence: None)
  Receive Date: 20050906
  Receipt Date: 20050715
  Transmission Date: 20060218
  Serious: Yes (Hospitalization)
  Sender: FDA-Public Use
  Company Number: 2005AP03905

PATIENT
  Age: 10945 Day
  Sex: Female

DRUGS (10)
  1. SEROQUEL [Suspect]
     Indication: SCHIZOPHRENIA
     Route: 048
     Dates: start: 20040712
  2. RISPERDAL [Suspect]
     Indication: SCHIZOPHRENIA
     Route: 048
     Dates: start: 20040726, end: 20050629
  3. RISPERDAL [Suspect]
     Route: 048
     Dates: start: 20040727, end: 20050629
  4. TEGRETOL [Suspect]
     Indication: SCHIZOPHRENIA
     Route: 048
     Dates: start: 20040816, end: 20050629
  5. TOLEDOMIN [Concomitant]
     Indication: SCHIZOPHRENIA
     Route: 048
     Dates: start: 20050307
  6. ACINON [Concomitant]
     Indication: GASTRITIS
     Route: 048
     Dates: start: 20050530, end: 20050629
  7. ROHYPNOL [Concomitant]
     Indication: SCHIZOPHRENIA
     Route: 048
  8. PRIMPERAN INJ [Concomitant]
     Indication: GASTRITIS
     Route: 048
     Dates: start: 20050617, end: 20050624
  9. AKINETON [Concomitant]
     Route: 048
     Dates: start: 20040621
  10. AMOBAN [Concomitant]
     Route: 048
     Dates: start: 20040621

REACTIONS (3)
  - DIABETES MELLITUS [None]
  - DIABETIC KETOACIDOSIS [None]
  - HYPOKALAEMIA [None]
